FAERS Safety Report 16143876 (Version 1)
Quarter: 2019Q2

REPORT INFORMATION
  Report Type: Spontaneous
  Country: FR (occurrence: FR)
  Receive Date: 20190401
  Receipt Date: 20190401
  Transmission Date: 20190711
  Serious: Yes (Death, Other)
  Sender: FDA-Public Use
  Company Number: FR-PFIZER INC-2019136950

PATIENT
  Age: 86 Year
  Sex: Female

DRUGS (5)
  1. KEPPRA [Suspect]
     Active Substance: LEVETIRACETAM
     Indication: EPILEPSY
     Dosage: 1000 MG, 1X/DAY
     Route: 042
     Dates: start: 20190308, end: 20190312
  2. ROCEPHINE [Suspect]
     Active Substance: CEFTRIAXONE SODIUM
     Indication: LUNG INFECTION
     Dosage: 1 G, 1X/DAY
     Route: 042
     Dates: start: 20190304, end: 20190311
  3. METHYLPREDNISOLONE SODIUM SUCCINATE. [Suspect]
     Active Substance: METHYLPREDNISOLONE SODIUM SUCCINATE
     Indication: VASCULITIS
     Dosage: 500 MG, 1X/DAY
     Route: 042
     Dates: start: 20190308, end: 20190311
  4. AMOXICILLINE PANPHARMA [Suspect]
     Active Substance: AMOXICILLIN
     Indication: LISTERIOSIS
     Dosage: 3 G, UNK
     Route: 042
     Dates: start: 20190308, end: 20190311
  5. ACICLOVIR [Suspect]
     Active Substance: ACYCLOVIR
     Indication: MENINGOENCEPHALITIS HERPETIC
     Dosage: UNK
     Route: 042
     Dates: start: 20190308, end: 20190309

REACTIONS (3)
  - Product use in unapproved indication [Unknown]
  - Multiple organ dysfunction syndrome [Fatal]
  - Stevens-Johnson syndrome [Fatal]

NARRATIVE: CASE EVENT DATE: 20190309
